FAERS Safety Report 12765989 (Version 1)
Quarter: 2016Q3

REPORT INFORMATION
  Report Type: Spontaneous
  Country: US (occurrence: US)
  Receive Date: 20160920
  Receipt Date: 20160920
  Transmission Date: 20161109
  Serious: Yes (Life-Threatening, Hospitalization)
  Sender: FDA-Public Use
  Company Number: None

PATIENT
  Age: 81 Year
  Sex: Female
  Weight: 73.7 kg

DRUGS (1)
  1. APIXABAN BRISTOL MYERS SQUIBB [Suspect]
     Active Substance: APIXABAN
     Indication: ATRIAL FIBRILLATION
     Route: 048
     Dates: start: 20160616, end: 20160716

REACTIONS (6)
  - Mean cell volume abnormal [None]
  - Dysphagia [None]
  - Brain midline shift [None]
  - Haemoglobin decreased [None]
  - Fall [None]
  - Subdural haematoma [None]

NARRATIVE: CASE EVENT DATE: 20160716
